FAERS Safety Report 7763362-3 (Version None)
Quarter: 2011Q3

REPORT INFORMATION
  Report Type: 
  Country: None (occurrence: None)
  Receive Date: 20110920
  Receipt Date: 20110908
  Transmission Date: 20111222
  Serious: Yes (Other)
  Sender: FDA-Public Use
  Company Number: US-ELI_LILLY_AND_COMPANY-US201004004651

PATIENT
  Sex: Female

DRUGS (12)
  1. ADVAIR DISKUS 100/50 [Concomitant]
  2. CLARITIN [Concomitant]
  3. OCUPRESS [Concomitant]
  4. SPIRIVA [Concomitant]
  5. VITAMIN D [Concomitant]
  6. CALCIUM CARBONATE [Concomitant]
  7. DIOVAN [Concomitant]
  8. FORTEO [Suspect]
     Indication: OSTEOPOROSIS
     Dosage: 20 UG, DAILY (1/D)
     Dates: start: 20100405
  9. FORTEO [Suspect]
     Dosage: 20 UG, DAILY (1/D)
  10. TRIAMTERENE [Concomitant]
  11. FORTEO [Suspect]
     Dosage: 20 UG, QD
     Route: 065
  12. FORTEO [Suspect]
     Dosage: 20 UG, QD
     Route: 065

REACTIONS (7)
  - NASOPHARYNGITIS [None]
  - HEADACHE [None]
  - LUNG NEOPLASM MALIGNANT [None]
  - NEOPLASM [None]
  - EXPIRED DRUG ADMINISTERED [None]
  - CONTUSION [None]
  - HERPES ZOSTER [None]
